FAERS Safety Report 24613860 (Version 2)
Quarter: 2024Q4

REPORT INFORMATION
  Report Type: Spontaneous
  Country: FR (occurrence: FR)
  Receive Date: 20241113
  Receipt Date: 20241118
  Transmission Date: 20250115
  Serious: Yes (Other)
  Sender: MYLAN
  Company Number: FR-MYLANLABS-2024M1100071

PATIENT
  Age: 38 Year
  Sex: Female
  Weight: 46 kg

DRUGS (1)
  1. EPIPEN [Suspect]
     Active Substance: EPINEPHRINE
     Indication: Product used for unknown indication
     Dosage: 30 MILLIGRAM
     Route: 030
     Dates: start: 20241007

REACTIONS (5)
  - Condition aggravated [Unknown]
  - Irritability [Unknown]
  - Asthenia [Unknown]
  - Anxiety [Unknown]
  - Accidental exposure to product [Unknown]

NARRATIVE: CASE EVENT DATE: 20241007
